FAERS Safety Report 9420084 (Version 1)
Quarter: 2013Q3

REPORT INFORMATION
  Report Type: Spontaneous
  Country: JP (occurrence: JP)
  Receive Date: 20130725
  Receipt Date: 20130725
  Transmission Date: 20140515
  Serious: Yes (Other)
  Sender: FDA-Public Use
  Company Number: JP-ASTRAZENECA-2013SE41755

PATIENT
  Age: 17601 Day
  Sex: Male

DRUGS (5)
  1. CRESTOR [Suspect]
     Indication: DYSLIPIDAEMIA
     Route: 048
     Dates: start: 20100324, end: 20130508
  2. MEVALOTIN [Suspect]
     Indication: DYSLIPIDAEMIA
     Route: 048
     Dates: start: 20090417, end: 20100323
  3. FEBURIC [Suspect]
     Route: 048
     Dates: start: 20120919
  4. URINORM [Concomitant]
     Route: 048
     Dates: start: 20100906, end: 20120918
  5. URALYT [Concomitant]
     Route: 048
     Dates: start: 20101128, end: 20120901

REACTIONS (2)
  - Back pain [Recovering/Resolving]
  - Blood creatine phosphokinase increased [Recovering/Resolving]
